FAERS Safety Report 24575068 (Version 1)
Quarter: 2024Q4

REPORT INFORMATION
  Report Type: Spontaneous
  Country: NL (occurrence: NL)
  Receive Date: 20241104
  Receipt Date: 20241104
  Transmission Date: 20250115
  Serious: Yes (Hospitalization, Other)
  Sender: TERSERA THERAPEUTICS
  Company Number: NL-AstraZeneca-CH-00727659A

PATIENT

DRUGS (2)
  1. GOSERELIN [Suspect]
     Active Substance: GOSERELIN
     Indication: Oncological evaluation
     Dosage: 10.8 MILLIGRAM EVERY 3 MONTHS
     Route: 058
     Dates: start: 20200403
  2. ZOLADEX [Suspect]
     Active Substance: GOSERELIN ACETATE
     Indication: Oncological evaluation
     Dosage: UNK
     Route: 065

REACTIONS (2)
  - Colon cancer [Recovering/Resolving]
  - Product use issue [Recovering/Resolving]

NARRATIVE: CASE EVENT DATE: 20240716
